FAERS Safety Report 8193181 (Version 2)
Quarter: 2012Q4

REPORT INFORMATION
  Report Type: 
  Country: JP (occurrence: JP)
  Receive Date: 20111021
  Receipt Date: 20121127
  Transmission Date: 20130627
  Serious: Yes (Hospitalization)
  Sender: FDA-Public Use
  Company Number: JP-NOVOPROD-337232

PATIENT
  Age: 58 Year
  Sex: Male
  Weight: 61 kg

DRUGS (16)
  1. VICTOZA HIKACHU INJECTION [Suspect]
     Indication: TYPE 2 DIABETES MELLITUS
     Dosage: 0.3 mg, qd
     Route: 058
     Dates: start: 20100812
  2. VICTOZA HIKACHU INJECTION [Suspect]
     Dosage: 0.6 mg, qd
     Route: 058
     Dates: start: 20100819
  3. VICTOZA HIKACHU INJECTION [Suspect]
     Dosage: 0.9 mg, qd
     Route: 058
     Dates: start: 20100826, end: 20110928
  4. BAYASPIRIN [Concomitant]
     Indication: CEREBRAL INFARCTION
     Dosage: 100 mg, qd
     Route: 048
  5. BAYASPIRIN [Concomitant]
     Indication: MYOCARDIAL INFARCTION
  6. DIOVAN [Concomitant]
     Indication: CEREBRAL INFARCTION
     Dosage: 120 mg, qd
     Route: 048
  7. DIOVAN [Concomitant]
     Indication: MYOCARDIAL INFARCTION
  8. LASIX                              /00032601/ [Concomitant]
     Indication: MYOCARDIAL INFARCTION
     Dosage: 40 mg, qd
     Route: 048
  9. APORASNON [Concomitant]
     Indication: MYOCARDIAL INFARCTION
     Dosage: 25 mg, qd
     Route: 048
  10. LIPITOR [Concomitant]
     Indication: HYPERLIPIDAEMIA
     Dosage: 10 mg, qd
     Route: 048
  11. METGLUCO [Concomitant]
     Indication: TYPE 2 DIABETES MELLITUS
     Dosage: 750 mg, qd
     Route: 048
     Dates: start: 20100716
  12. ITOROL [Concomitant]
     Indication: MYOCARDIAL INFARCTION
     Dosage: 40 mg, qd
     Route: 048
  13. BAYMYCARD [Concomitant]
     Indication: MYOCARDIAL INFARCTION
     Dosage: 10 mg, qd
     Route: 048
  14. LANSOPRAZOLE [Concomitant]
     Indication: GASTROOESOPHAGEAL REFLUX DISEASE
     Dosage: 30 mg, qd
     Route: 048
  15. EPADEL                             /01682401/ [Concomitant]
     Indication: HYPERLIPIDAEMIA
     Dosage: 1800 mg, qd
     Route: 048
  16. MINIPRESS [Concomitant]
     Indication: HYPERTENSION
     Dosage: 2 mg, qd
     Route: 048

REACTIONS (1)
  - Pancreatitis acute [Recovered/Resolved]
